FAERS Safety Report 13831762 (Version 1)
Quarter: 2017Q3

REPORT INFORMATION
  Report Type: Spontaneous
  Country: US (occurrence: US)
  Receive Date: 20170803
  Receipt Date: 20170803
  Transmission Date: 20171127
  Serious: No
  Sender: FDA-Public Use
  Company Number: US-ROCHE-435756

PATIENT
  Age: 59 Year
  Sex: Female

DRUGS (11)
  1. GENERIC COMPONENT(S) NOT KNOWN [Concomitant]
     Active Substance: UNSPECIFIED INGREDIENT
     Dosage: DRUG: CALCIUM MAGNESIUM VITAMIN D
     Route: 065
  2. KELP [Concomitant]
     Active Substance: KELP
     Route: 065
  3. GENERIC COMPONENT(S) NOT KNOWN [Concomitant]
     Active Substance: UNSPECIFIED INGREDIENT
     Dosage: DRUG: OMEGA FISH OIL
     Route: 065
  4. BONIVA [Suspect]
     Active Substance: IBANDRONATE SODIUM
     Route: 048
  5. GLUCOSAMINE [Concomitant]
     Active Substance: GLUCOSAMINE
     Route: 065
  6. CHONDROITIN [Concomitant]
     Active Substance: CHONDROITIN
     Route: 065
  7. CHOLEST-OFF [Concomitant]
     Active Substance: DIETARY SUPPLEMENT
     Route: 065
  8. SYNTHROID [Concomitant]
     Active Substance: LEVOTHYROXINE SODIUM
     Route: 065
  9. BROMELAIN [Concomitant]
     Active Substance: BROMELAINS
     Route: 065
  10. VITAMIN C [Concomitant]
     Active Substance: ASCORBIC ACID
     Route: 065
  11. BONIVA [Suspect]
     Active Substance: IBANDRONATE SODIUM
     Indication: OSTEOPOROSIS
     Route: 048
     Dates: start: 200509, end: 200709

REACTIONS (16)
  - Pain in extremity [Not Recovered/Not Resolved]
  - Dysgeusia [Recovered/Resolved]
  - Arthralgia [Not Recovered/Not Resolved]
  - Eye pruritus [Recovered/Resolved]
  - Sinus disorder [Not Recovered/Not Resolved]
  - Musculoskeletal pain [Not Recovered/Not Resolved]
  - Calcinosis [Unknown]
  - Flushing [Not Recovered/Not Resolved]
  - Lacrimation increased [Recovered/Resolved]
  - Dizziness [Unknown]
  - Muscle strain [Unknown]
  - Tooth infection [Unknown]
  - Tooth extraction [Unknown]
  - Neck pain [Not Recovered/Not Resolved]
  - Myalgia [Not Recovered/Not Resolved]
  - Skin burning sensation [Not Recovered/Not Resolved]

NARRATIVE: CASE EVENT DATE: 200602
